FAERS Safety Report 9228580 (Version 3)
Quarter: 2013Q2

REPORT INFORMATION
  Report Type: Report from Study
  Country: CA (occurrence: CA)
  Receive Date: 20130412
  Receipt Date: 20130523
  Transmission Date: 20140414
  Serious: Yes (Hospitalization)
  Sender: FDA-Public Use
  Company Number: CA-PFIZER INC-2013077533

PATIENT
  Age: 68 Year
  Sex: Male
  Weight: 101 kg

DRUGS (8)
  1. SUNITINIB MALATE [Suspect]
     Indication: PHAEOCHROMOCYTOMA
     Dosage: 50 MG DAILY, 4 WEEKS ON, 2 WEEKS OFF
     Route: 048
     Dates: start: 20111020, end: 20130216
  2. NORVASC [Concomitant]
     Indication: HYPERTENSION
     Dosage: UNK
     Route: 048
     Dates: start: 2008
  3. ATACAND [Concomitant]
     Indication: HYPERTENSION
     Dosage: UNK
     Route: 048
     Dates: start: 2008
  4. ATENOLOL [Concomitant]
     Indication: HYPERTENSION
     Dosage: UNK
     Route: 048
     Dates: start: 2008
  5. SYNTHROID [Concomitant]
     Indication: HYPOTHYROIDISM
     Dosage: UNK
     Route: 048
     Dates: start: 20121218
  6. LASIX [Concomitant]
     Indication: CARDIAC FAILURE
     Dosage: UNK
     Dates: start: 20121031, end: 20130215
  7. PANTOLOC [Concomitant]
     Indication: DYSPEPSIA
     Dosage: UNK
     Route: 048
     Dates: start: 20120222
  8. CLONAZEPAM [Concomitant]
     Indication: INSOMNIA
     Dosage: UNK
     Route: 048
     Dates: start: 2008

REACTIONS (1)
  - Generalised oedema [Recovered/Resolved]
